FAERS Safety Report 11928149 (Version 1)
Quarter: 2016Q1

REPORT INFORMATION
  Report Type: Spontaneous
  Country: US (occurrence: US)
  Receive Date: 20160119
  Receipt Date: 20160119
  Transmission Date: 20160526
  Serious: No
  Sender: FDA-Public Use
  Company Number: US-GE HEALTHCARE MEDICAL DIAGNOSTICS-OPTN-PR-1503S-0005

PATIENT
  Age: 48 Year
  Sex: Female

DRUGS (7)
  1. PROZAC [Concomitant]
     Active Substance: FLUOXETINE HYDROCHLORIDE
  2. HEPARIN [Concomitant]
     Active Substance: HEPARIN SODIUM
  3. METOPROLOL. [Concomitant]
     Active Substance: METOPROLOL
  4. BENADRYL [Concomitant]
     Active Substance: DIPHENHYDRAMINE HYDROCHLORIDE
  5. OPTISON [Suspect]
     Active Substance: ALBUMIN (HUMAN)
     Indication: MYOCARDIAL INFARCTION
     Route: 042
     Dates: start: 20150313, end: 20150313
  6. LISINOPRIL. [Concomitant]
     Active Substance: LISINOPRIL
  7. OPTISON [Suspect]
     Active Substance: ALBUMIN (HUMAN)
     Indication: DIAGNOSTIC PROCEDURE

REACTIONS (2)
  - Feeling hot [Recovered/Resolved]
  - Flushing [Recovered/Resolved]

NARRATIVE: CASE EVENT DATE: 20150313
